FAERS Safety Report 4529673-X (Version None)
Quarter: 2005Q1

REPORT INFORMATION
  Report Type: 
  Country: None (occurrence: None)
  Receive Date: 20041202
  Receipt Date: 20040909
  Transmission Date: 20050727
  Serious: No
  Sender: FDA-Public Use
  Company Number: 200417756BWH

PATIENT
  Age: 67 Year
  Sex: Male

DRUGS (5)
  1. LEVITRA [Suspect]
     Indication: ERECTILE DYSFUNCTION
     Dosage: 20 MG, OW, ORAL
     Route: 048
     Dates: start: 20040401
  2. DILTIAZEM [Concomitant]
  3. CONENZYME Q10 [Concomitant]
  4. VITAL REMEDY (MULTIVITAMIN) [Concomitant]
  5. VIAGRA [Concomitant]

REACTIONS (1)
  - ERECTILE DYSFUNCTION [None]
